FAERS Safety Report 12817018 (Version 4)
Quarter: 2017Q1

REPORT INFORMATION
  Report Type: Spontaneous
  Country: US (occurrence: US)
  Receive Date: 20161006
  Receipt Date: 20170310
  Transmission Date: 20170428
  Serious: Yes (Other)
  Sender: FDA-Public Use
  Company Number: PHEH2016US025674

PATIENT
  Sex: Female
  Weight: 54.43 kg

DRUGS (3)
  1. ZOFRAN [Suspect]
     Active Substance: ONDANSETRON HYDROCHLORIDE
     Indication: VOMITING IN PREGNANCY
     Route: 048
     Dates: start: 200503, end: 200504
  2. ZOFRAN [Suspect]
     Active Substance: ONDANSETRON HYDROCHLORIDE
     Dosage: 4 MG, BID
     Route: 048
     Dates: start: 20050406, end: 20050808
  3. ZOFRAN ODT [Suspect]
     Active Substance: ONDANSETRON HYDROCHLORIDE
     Indication: VOMITING IN PREGNANCY
     Dosage: 04 MG, Q8H
     Route: 048
     Dates: start: 20050406, end: 20050506

REACTIONS (7)
  - Amniotic cavity infection [Unknown]
  - Pyrexia [Unknown]
  - Anxiety [Unknown]
  - Product use issue [Unknown]
  - Maternal exposure during pregnancy [Unknown]
  - Emotional distress [Unknown]
  - Injury [Unknown]
